FAERS Safety Report 10770779 (Version 1)
Quarter: 2015Q1

REPORT INFORMATION
  Report Type: Spontaneous
  Country: US (occurrence: None)
  Receive Date: 20150204
  Receipt Date: 20150204
  Transmission Date: 20150721
  Serious: Yes (Death)
  Sender: FDA-Public Use
  Company Number: 2725255

PATIENT
  Age: 49 Year
  Sex: Female

DRUGS (4)
  1. ZONISAMIDE. [Suspect]
     Active Substance: ZONISAMIDE
     Dates: start: 2013, end: 2013
  2. MARIJUANA [Suspect]
     Active Substance: CANNABIS SATIVA SUBSP. INDICA TOP
     Dates: start: 2013, end: 2013
  3. FENTANYL CITRATE. [Suspect]
     Active Substance: FENTANYL CITRATE
     Dates: start: 2013, end: 2013
  4. COCAINE [Suspect]
     Active Substance: COCAINE
     Dates: start: 2013, end: 2013

REACTIONS (4)
  - Respiratory arrest [None]
  - Drug abuse [None]
  - Poisoning [None]
  - Cardiac arrest [None]

NARRATIVE: CASE EVENT DATE: 2013
